FAERS Safety Report 9695023 (Version 1)
Quarter: 2013Q4

REPORT INFORMATION
  Report Type: Spontaneous
  Country: NO (occurrence: NO)
  Receive Date: 20131119
  Receipt Date: 20131119
  Transmission Date: 20140711
  Serious: Yes (Hospitalization)
  Sender: FDA-Public Use
  Company Number: NO-JNJFOC-20131110668

PATIENT
  Age: 85 Year
  Sex: Female

DRUGS (13)
  1. XARELTO [Suspect]
     Indication: EMBOLISM VENOUS
     Route: 048
     Dates: start: 20130914, end: 20131031
  2. XARELTO [Suspect]
     Indication: DEEP VEIN THROMBOSIS
     Route: 048
     Dates: start: 20130914, end: 20131031
  3. OMEGA-3 TRIGLYCERIDES [Concomitant]
  4. PARACETAMOL [Concomitant]
     Route: 048
  5. ZOCOR [Concomitant]
     Route: 048
  6. MAGNESIUM [Concomitant]
     Route: 048
  7. SALAZOPYRIN [Concomitant]
     Route: 048
  8. PREDNISOLON [Concomitant]
     Route: 048
  9. SELO-ZOK [Concomitant]
     Route: 048
  10. LOPERAMIDE [Concomitant]
     Route: 048
  11. SAROTEX [Concomitant]
     Route: 048
  12. PROGYNOVA [Concomitant]
     Route: 048
  13. CALCIGRAN FORTE [Concomitant]
     Route: 048

REACTIONS (2)
  - Syncope [Unknown]
  - Dizziness [Unknown]
